FAERS Safety Report 17123479 (Version 1)
Quarter: 2019Q4

REPORT INFORMATION
  Report Type: Spontaneous
  Country: JP (occurrence: JP)
  Receive Date: 20191206
  Receipt Date: 20191206
  Transmission Date: 20200122
  Serious: Yes (Life-Threatening, Hospitalization, Other)
  Sender: FDA-Public Use
  Company Number: JP-PFIZER INC-2019256192

PATIENT
  Age: 74 Year
  Sex: Female
  Weight: 47 kg

DRUGS (3)
  1. LETROZOLE. [Concomitant]
     Active Substance: LETROZOLE
     Indication: BREAST CANCER RECURRENT
     Dosage: 2.5 MG, 1X/DAY
     Route: 048
     Dates: start: 20190517, end: 20190704
  2. IBRANCE [Suspect]
     Active Substance: PALBOCICLIB
     Indication: BREAST CANCER RECURRENT
     Dosage: 100 MG, CYCLIC (DAILY)
     Route: 048
     Dates: start: 20190517, end: 20190606
  3. IBRANCE [Suspect]
     Active Substance: PALBOCICLIB
     Dosage: 75 MG, CYCLIC (DAILY)
     Route: 048
     Dates: start: 20190621, end: 20190704

REACTIONS (13)
  - Blood calcium decreased [Unknown]
  - Pleural effusion [Unknown]
  - Interstitial lung disease [Recovered/Resolved]
  - Platelet count decreased [Unknown]
  - Blood uric acid increased [Unknown]
  - Neoplasm progression [Not Recovered/Not Resolved]
  - White blood cell count decreased [Unknown]
  - Cyst [Unknown]
  - Neutrophil count decreased [Recovered/Resolved]
  - Protein total decreased [Unknown]
  - Red blood cell count decreased [Unknown]
  - Blood urea increased [Unknown]
  - Blood chloride increased [Unknown]

NARRATIVE: CASE EVENT DATE: 20190523
